FAERS Safety Report 4352500-0 (Version None)
Quarter: 2004Q2

REPORT INFORMATION
  Report Type: 
  Country: None (occurrence: None)
  Receive Date: 20040409
  Receipt Date: 20040115
  Transmission Date: 20050107
  Serious: No
  Sender: FDA-Public Use
  Company Number: PHEH2004US00872

PATIENT
  Age: 5 Month
  Sex: Female

DRUGS (1)
  1. ELIDEL [Suspect]
     Indication: ECZEMA
     Dosage: TOPICAL
     Route: 061
     Dates: start: 20040114, end: 20040114

REACTIONS (3)
  - APPLICATION SITE PRURITUS [None]
  - CRYING [None]
  - IRRITABILITY [None]
